FAERS Safety Report 13376591 (Version 1)
Quarter: 2017Q1

REPORT INFORMATION
  Report Type: Spontaneous
  Country: US (occurrence: US)
  Receive Date: 20170327
  Receipt Date: 20170327
  Transmission Date: 20170429
  Serious: Yes (Death)
  Sender: FDA-Public Use
  Company Number: None

PATIENT
  Age: 78 Year
  Sex: Male
  Weight: 91.1 kg

DRUGS (1)
  1. QUETIAPINE FUMARATE. [Suspect]
     Active Substance: QUETIAPINE FUMARATE
     Indication: AGGRESSION
     Dosage: ?          OTHER FREQUENCY:ONE TIME DOSE;?
     Route: 048
     Dates: start: 20170311, end: 20170311

REACTIONS (2)
  - Neuroleptic malignant syndrome [None]
  - Loss of consciousness [None]

NARRATIVE: CASE EVENT DATE: 20170312
